FAERS Safety Report 5990021-X (Version None)
Quarter: 2008Q4

REPORT INFORMATION
  Report Type: 
  Country: None (occurrence: None)
  Receive Date: 20081209
  Receipt Date: 20081209
  Transmission Date: 20090506
  Serious: Yes (Other)
  Sender: FDA-Public Use
  Company Number: None

PATIENT
  Age: 33 Year
  Sex: Female
  Weight: 93.441 kg

DRUGS (2)
  1. CYMBALTA [Suspect]
     Indication: FIBROMYALGIA
     Dosage: 120 MG DAILY PO
     Route: 048
  2. CYMBALTA [Suspect]
     Indication: SEASONAL AFFECTIVE DISORDER
     Dosage: 120 MG DAILY PO
     Route: 048

REACTIONS (3)
  - HEPATIC PAIN [None]
  - HEPATIC STEATOSIS [None]
  - LIVER DISORDER [None]
